FAERS Safety Report 8697817 (Version 2)
Quarter: 2013Q1

REPORT INFORMATION
  Report Type: Spontaneous
  Country: US (occurrence: US)
  Receive Date: 20120801
  Receipt Date: 20130325
  Transmission Date: 20140127
  Serious: No
  Sender: FDA-Public Use
  Company Number: US-ASTRAZENECA-2012SE51551

PATIENT
  Age: 59 Year
  Sex: Female

DRUGS (1)
  1. NEXIUM [Suspect]
     Route: 048

REACTIONS (5)
  - Intervertebral disc protrusion [Unknown]
  - Accident at work [Unknown]
  - Hyperchlorhydria [Unknown]
  - Feeling abnormal [Unknown]
  - Drug dose omission [Unknown]
